FAERS Safety Report 19496379 (Version 1)
Quarter: 2021Q3

REPORT INFORMATION
  Report Type: Spontaneous
  Country: US (occurrence: US)
  Receive Date: 20210702
  Receipt Date: 20210702
  Transmission Date: 20211014
  Serious: No
  Sender: FDA-Public Use
  Company Number: None

PATIENT
  Age: 70 Year
  Sex: Male
  Weight: 92 kg

DRUGS (1)
  1. WARFARIN (WARFARIN NA (EXELAN) 5MG TAB) [Suspect]
     Active Substance: WARFARIN SODIUM
     Indication: ATRIAL FIBRILLATION
     Dates: start: 20210330, end: 20210408

REACTIONS (7)
  - Pneumonia [None]
  - Peritoneal haematoma [None]
  - Shock haemorrhagic [None]
  - Deep vein thrombosis [None]
  - Retroperitoneal haematoma [None]
  - Haemoperitoneum [None]
  - Haemorrhage [None]

NARRATIVE: CASE EVENT DATE: 20210409
